FAERS Safety Report 4774727-6 (Version None)
Quarter: 2005Q3

REPORT INFORMATION
  Report Type: 
  Country: None (occurrence: None)
  Receive Date: 20050921
  Receipt Date: 20050915
  Transmission Date: 20060218
  Serious: Yes (Other)
  Sender: FDA-Public Use
  Company Number: CA-GLAXOSMITHKLINE-A0574941A

PATIENT
  Age: 52 Year
  Sex: Female

DRUGS (4)
  1. WELLBUTRIN SR [Suspect]
     Indication: DRUG USE FOR UNKNOWN INDICATION
     Route: 048
  2. CITALOPRAM [Suspect]
     Indication: DRUG USE FOR UNKNOWN INDICATION
     Dosage: 60MG PER DAY
     Route: 048
  3. AVELOX [Suspect]
     Indication: DRUG USE FOR UNKNOWN INDICATION
     Route: 065
  4. BUSPAR [Suspect]
     Indication: DRUG USE FOR UNKNOWN INDICATION
     Dosage: 10MG THREE TIMES PER DAY
     Route: 048

REACTIONS (7)
  - ANAPHYLACTIC REACTION [None]
  - ASTHMA [None]
  - DYSPNOEA [None]
  - FACE OEDEMA [None]
  - PHARYNGEAL OEDEMA [None]
  - PYREXIA [None]
  - URTICARIA [None]
